FAERS Safety Report 9455144 (Version 3)
Quarter: 2013Q4

REPORT INFORMATION
  Report Type: Report from Study
  Country: CA (occurrence: CA)
  Receive Date: 20130813
  Receipt Date: 20131008
  Transmission Date: 20140711
  Serious: Yes (Other)
  Sender: FDA-Public Use
  Company Number: CA-ROCHE-1260861

PATIENT
  Age: 44 Year
  Sex: Female
  Weight: 77.1 kg

DRUGS (6)
  1. ACTEMRA [Suspect]
     Indication: RHEUMATOID ARTHRITIS
     Route: 042
     Dates: start: 20130705, end: 20130705
  2. PREDNISONE [Concomitant]
  3. METHOTREXATE [Concomitant]
     Dosage: PO/WK (NOS)
     Route: 065
  4. FOLIC ACID [Concomitant]
  5. LEFLUNOMIDE [Concomitant]
  6. CYMBALTA [Concomitant]

REACTIONS (5)
  - Skin lesion [Unknown]
  - Pruritus [Unknown]
  - Headache [Unknown]
  - Fatigue [Unknown]
  - Lethargy [Unknown]
